FAERS Safety Report 18767062 (Version 1)
Quarter: 2021Q1

REPORT INFORMATION
  Report Type: Spontaneous
  Country: US (occurrence: US)
  Receive Date: 20210119
  Receipt Date: 20210119
  Transmission Date: 20210419
  Serious: Yes (Other)
  Sender: FDA-Public Use
  Company Number: None

PATIENT
  Age: 51 Year
  Sex: Male
  Weight: 90.45 kg

DRUGS (2)
  1. BAMLANIVIMAB. [Suspect]
     Active Substance: BAMLANIVIMAB
     Indication: SARS-COV-2 TEST POSITIVE
     Dates: start: 20210109, end: 20210109
  2. BAM [Concomitant]
     Dates: start: 20210109, end: 20210109

REACTIONS (1)
  - Dizziness [None]

NARRATIVE: CASE EVENT DATE: 20210117
